FAERS Safety Report 6656206-4 (Version None)
Quarter: 2010Q1

REPORT INFORMATION
  Report Type: 
  Country: None (occurrence: None)
  Receive Date: 20100326
  Receipt Date: 20100326
  Transmission Date: 20100710
  Serious: Yes (Other)
  Sender: FDA-Public Use
  Company Number: None

PATIENT
  Age: 83 Year
  Sex: Female
  Weight: 68.0396 kg

DRUGS (1)
  1. VITAMIN D [Suspect]
     Indication: BONE DISORDER
     Dosage: SOLF CAPSULE ONE CAPSULE WEEKLY PO
     Route: 048
     Dates: start: 20091201, end: 20100228

REACTIONS (3)
  - BALANCE DISORDER [None]
  - DIZZINESS [None]
  - GAIT DISTURBANCE [None]
